FAERS Safety Report 11231718 (Version 1)
Quarter: 2015Q2

REPORT INFORMATION
  Report Type: Spontaneous
  Country: US (occurrence: None)
  Receive Date: 20150630
  Receipt Date: 20150630
  Transmission Date: 20150821
  Serious: Yes (Hospitalization)
  Sender: FDA-Public Use
  Company Number: None

PATIENT
  Age: 77 Year
  Sex: Male
  Weight: 95 kg

DRUGS (2)
  1. 5-FLUOROURACIL (5-FU) [Suspect]
     Active Substance: FLUOROURACIL
     Dates: end: 20150626
  2. ELOXATIN [Suspect]
     Active Substance: OXALIPLATIN
     Dates: end: 20150622

REACTIONS (2)
  - Aphagia [None]
  - Regurgitation [None]

NARRATIVE: CASE EVENT DATE: 20150624
